FAERS Safety Report 8429857 (Version 6)
Quarter: 2014Q1

REPORT INFORMATION
  Report Type: Report from Study
  Country: US (occurrence: US)
  Receive Date: 20120228
  Receipt Date: 20140317
  Transmission Date: 20141002
  Serious: Yes (Other)
  Sender: FDA-Public Use
  Company Number: US-BAYER-2012-015702

PATIENT
  Age: 44 Year
  Sex: Female
  Weight: 77 kg

DRUGS (3)
  1. MIRENA [Suspect]
     Dosage: 20 MCG/24HR, CONT
     Route: 015
     Dates: start: 20061114, end: 20130212
  2. LEVOTHYROXINE SODIUM [Concomitant]
     Dosage: 100 MG, QD
     Route: 048
  3. PRISTIQ [Concomitant]
     Dosage: 50 MG, QD
     Route: 048

REACTIONS (4)
  - Device breakage [None]
  - Complication of device removal [None]
  - Amenorrhoea [None]
  - Device misuse [None]
